FAERS Safety Report 24390847 (Version 2)
Quarter: 2024Q4

REPORT INFORMATION
  Report Type: Spontaneous
  Country: JP (occurrence: JP)
  Receive Date: 20241003
  Receipt Date: 20241112
  Transmission Date: 20250114
  Serious: Yes (Death, Other)
  Sender: TAKEDA
  Company Number: JP-TAKEDA-2024TJP014393AA

PATIENT
  Age: 9 Decade
  Sex: Female

DRUGS (2)
  1. CUVITRU [Suspect]
     Active Substance: HUMAN IMMUNOGLOBULIN G
     Indication: Hypogammaglobulinaemia
     Dosage: 4 GRAM
  2. ELRANATAMAB [Concomitant]
     Active Substance: ELRANATAMAB
     Dosage: UNK

REACTIONS (2)
  - Marasmus [Fatal]
  - Hypogammaglobulinaemia [Fatal]
